FAERS Safety Report 4363816-6 (Version None)
Quarter: 2004Q2

REPORT INFORMATION
  Report Type: 
  Country: None (occurrence: None)
  Receive Date: 20040521
  Receipt Date: 20040427
  Transmission Date: 20050107
  Serious: No
  Sender: FDA-Public Use
  Company Number: 601106

PATIENT
  Age: 27 Year
  Sex: Female
  Weight: 58.0604 kg

DRUGS (1)
  1. TISSEEL VH KIT [Suspect]
     Indication: OBESITY SURGERY
     Dosage: 2 CC; ONCE;
     Dates: start: 20040209, end: 20040209

REACTIONS (11)
  - ABDOMINAL PAIN [None]
  - ATELECTASIS [None]
  - DYSPNOEA [None]
  - HAEMATOCRIT DECREASED [None]
  - HAEMOGLOBIN DECREASED [None]
  - OEDEMA PERIPHERAL [None]
  - PAIN [None]
  - PNEUMONIA [None]
  - POST PROCEDURAL HAEMATOMA [None]
  - SWELLING [None]
  - WOUND SECRETION [None]
